FAERS Safety Report 6028167-2 (Version None)
Quarter: 2008Q4

REPORT INFORMATION
  Report Type: 
  Country: None (occurrence: None)
  Receive Date: 20081231
  Receipt Date: 20081231
  Transmission Date: 20090506
  Serious: No
  Sender: FDA-Public Use
  Company Number: None

PATIENT
  Age: 77 Year
  Sex: Female

DRUGS (1)
  1. SUTENT [Suspect]
     Dosage: 50 MG DAILY ORAL
     Route: 048

REACTIONS (3)
  - CREATININE URINE INCREASED [None]
  - HYPERTENSION [None]
  - PERFORMANCE STATUS DECREASED [None]
